FAERS Safety Report 4863607-3 (Version None)
Quarter: 2005Q4

REPORT INFORMATION
  Report Type: 
  Country: None (occurrence: None)
  Receive Date: 20051222
  Receipt Date: 20050719
  Transmission Date: 20060501
  Serious: No
  Sender: FDA-Public Use
  Company Number: US-GLAXOSMITHKLINE-A0566918A

PATIENT
  Age: 59 Year
  Sex: Female
  Weight: 90.9 kg

DRUGS (18)
  1. FLOVENT [Suspect]
     Indication: DRUG USE FOR UNKNOWN INDICATION
     Dosage: 2PUFF TWICE PER DAY
     Route: 055
     Dates: start: 20050624
  2. LASIX [Concomitant]
  3. PRILOSEC [Concomitant]
  4. ZYRTEC [Concomitant]
  5. TOPROL-XL [Concomitant]
  6. DIOVAN [Concomitant]
  7. SYNTHROID [Concomitant]
  8. ALDACTONE [Concomitant]
  9. REGLAN [Concomitant]
  10. BUTABARBITAL [Concomitant]
  11. MUCINEX [Concomitant]
  12. MICRO-K [Concomitant]
  13. TIGAN [Concomitant]
  14. ASPIRIN [Concomitant]
  15. VICODIN [Concomitant]
  16. TOPAMAX [Concomitant]
  17. FLEXERIL [Concomitant]
  18. ALBUTEROL [Concomitant]

REACTIONS (2)
  - DRY THROAT [None]
  - PHARMACEUTICAL PRODUCT COMPLAINT [None]
